FAERS Safety Report 14593327 (Version 1)
Quarter: 2018Q1

REPORT INFORMATION
  Report Type: Spontaneous
  Country: DE (occurrence: DE)
  Receive Date: 20180302
  Receipt Date: 20180302
  Transmission Date: 20180509
  Serious: Yes (Other)
  Sender: FDA-Public Use
  Company Number: DE-SA-2018SA046294

PATIENT
  Age: 54 Year
  Sex: Male

DRUGS (2)
  1. VARGATEF [Suspect]
     Active Substance: NINTEDANIB
     Route: 065
     Dates: start: 20170501, end: 20171001
  2. DOCETAXEL. [Suspect]
     Active Substance: DOCETAXEL
     Route: 051
     Dates: start: 20170501, end: 20171001

REACTIONS (2)
  - Cerebral disorder [Unknown]
  - Lung disorder [Unknown]

NARRATIVE: CASE EVENT DATE: 20171001
